FAERS Safety Report 8391232-9 (Version None)
Quarter: 2012Q2

REPORT INFORMATION
  Report Type: 
  Country: None (occurrence: None)
  Receive Date: 20120529
  Receipt Date: 20120521
  Transmission Date: 20120825
  Serious: Yes (Hospitalization)
  Sender: FDA-Public Use
  Company Number: DE-UCBSA-053458

PATIENT
  Age: 40 Year
  Sex: Female
  Weight: 98 kg

DRUGS (5)
  1. KEPPRA [Concomitant]
  2. LEVETIRACETAM [Suspect]
  3. TEGRETOL [Concomitant]
  4. LEVOTHYROXINE SODIUM [Concomitant]
  5. KEPPRA [Concomitant]

REACTIONS (2)
  - CONVULSION [None]
  - PNEUMONIA [None]
